FAERS Safety Report 6199252-X (Version None)
Quarter: 2009Q2

REPORT INFORMATION
  Report Type: 
  Country: None (occurrence: None)
  Receive Date: 20090519
  Receipt Date: 20090519
  Transmission Date: 20091009
  Serious: Yes (Hospitalization)
  Sender: FDA-Public Use
  Company Number: None

PATIENT
  Age: 44 Year
  Sex: Female
  Weight: 87.0906 kg

DRUGS (1)
  1. SULAR [Suspect]
     Indication: HYPERTENSION
     Dosage: 1 TABLET 1 DAILY
     Dates: start: 20090515, end: 20090515

REACTIONS (3)
  - BLOOD POTASSIUM DECREASED [None]
  - BLOOD PRESSURE INCREASED [None]
  - MIGRAINE [None]
